FAERS Safety Report 9433957 (Version 1)
Quarter: 2013Q3

REPORT INFORMATION
  Report Type: Spontaneous
  Country: ES (occurrence: ES)
  Receive Date: 20130801
  Receipt Date: 20130801
  Transmission Date: 20140515
  Serious: Yes (Other)
  Sender: FDA-Public Use
  Company Number: ES-AMGEN-ESPSP2013053687

PATIENT
  Age: 45 Year
  Sex: Male

DRUGS (10)
  1. ETANERCEPT [Suspect]
     Indication: PRODUCT USED FOR UNKNOWN INDICATION
     Dosage: 25 MG, 2X/WEEK
     Route: 065
     Dates: start: 200507, end: 2007
  2. ETANERCEPT [Suspect]
     Dosage: UNK
  3. MTX                                /00113802/ [Concomitant]
     Indication: POLYARTHRITIS
     Dosage: 20 MG, WEEKLY
     Route: 058
  4. MTX                                /00113802/ [Concomitant]
     Indication: ENTHESOPATHY
  5. MTX                                /00113802/ [Concomitant]
     Indication: SPONDYLOARTHROPATHY
  6. METHYLPREDNISOLONE [Concomitant]
     Indication: POLYARTHRITIS
     Dosage: 4 MG/DAY
  7. METHYLPREDNISOLONE [Concomitant]
     Indication: ENTHESOPATHY
  8. METHYLPREDNISOLONE [Concomitant]
     Indication: SPONDYLOARTHROPATHY
  9. ISONIAZID [Concomitant]
     Indication: PROPHYLACTIC CHEMOTHERAPY
     Dosage: 300 MG/DAY
     Dates: start: 200507
  10. ISONIAZID [Concomitant]
     Indication: LATENT TUBERCULOSIS

REACTIONS (1)
  - Polychondritis [Recovered/Resolved]
